FAERS Safety Report 11545137 (Version 1)
Quarter: 2015Q3

REPORT INFORMATION
  Report Type: Spontaneous
  Country: US (occurrence: US)
  Receive Date: 20150924
  Receipt Date: 20150924
  Transmission Date: 20151125
  Serious: No
  Sender: FDA-Public Use
  Company Number: US-SHIRE-US201511977

PATIENT
  Age: 25 Year
  Sex: Female
  Weight: 104.31 kg

DRUGS (4)
  1. PREDNISONE. [Concomitant]
     Active Substance: PREDNISONE
     Indication: CROHN^S DISEASE
     Dosage: 50 MG, 1X/DAY:QD
     Route: 048
     Dates: start: 2013
  2. PENTASA [Suspect]
     Active Substance: MESALAMINE
     Indication: CROHN^S DISEASE
     Dosage: 4 DF (UNKNOWN DOSE), 3X/DAY:TID
     Route: 048
     Dates: start: 20150919, end: 20150921
  3. METRONIDAZOLE. [Concomitant]
     Active Substance: METRONIDAZOLE
     Indication: GASTROINTESTINAL INFECTION
     Dosage: 500 MG (TWO 250 MG TABLETS), 3X/DAY:TID
     Route: 048
  4. LEVOFLOXACIN. [Concomitant]
     Active Substance: LEVOFLOXACIN
     Indication: GASTROINTESTINAL INFECTION
     Dosage: 500 MG, 1X/DAY:QD
     Route: 048

REACTIONS (2)
  - No adverse event [Recovered/Resolved]
  - Product use issue [Recovered/Resolved]

NARRATIVE: CASE EVENT DATE: 20150919
